FAERS Safety Report 9753816 (Version 1)
Quarter: 2013Q4

REPORT INFORMATION
  Report Type: Spontaneous
  Country: US (occurrence: US)
  Receive Date: 20131213
  Receipt Date: 20131213
  Transmission Date: 20140711
  Serious: No
  Sender: FDA-Public Use
  Company Number: US-GILEAD-2010-0027578

PATIENT
  Sex: Female
  Weight: 58.97 kg

DRUGS (14)
  1. LETAIRIS [Suspect]
     Indication: PULMONARY ARTERIAL HYPERTENSION
     Route: 048
     Dates: start: 20091201
  2. REVATIO [Concomitant]
  3. NORVASC [Concomitant]
  4. HYDRALAZINE [Concomitant]
  5. LASIX [Concomitant]
  6. PREDNISONE [Concomitant]
  7. PREVACID [Concomitant]
  8. COUMADIN [Concomitant]
  9. EVOXAC [Concomitant]
  10. SINGULAIR [Concomitant]
  11. NYSTATIN [Concomitant]
  12. URSODIOL [Concomitant]
  13. NEPHRO-VITE [Concomitant]
  14. CALCIUM + D [Concomitant]

REACTIONS (1)
  - Oedema peripheral [Unknown]
